FAERS Safety Report 4394353-0 (Version None)
Quarter: 2004Q3

REPORT INFORMATION
  Report Type: 
  Country: None (occurrence: None)
  Receive Date: 20040709
  Receipt Date: 20040709
  Transmission Date: 20050211
  Serious: Yes (Life-Threatening)
  Sender: FDA-Public Use
  Company Number: None

PATIENT
  Age: 82 Year
  Sex: Female
  Weight: 68.0396 kg

DRUGS (1)
  1. ISOCAINE HCL [Suspect]
     Indication: ANAESTHESIA
     Dosage: 18 ML

REACTIONS (1)
  - ANAPHYLACTIC REACTION [None]
